FAERS Safety Report 11243362 (Version 1)
Quarter: 2015Q3

REPORT INFORMATION
  Report Type: Other
  Country: GB (occurrence: GB)
  Receive Date: 20150707
  Receipt Date: 20150707
  Transmission Date: 20151125
  Serious: Yes (Hospitalization)
  Sender: FDA-Public Use
  Company Number: GB-MYLANLABS-2015M1021401

PATIENT

DRUGS (7)
  1. INDAPAMIDE. [Suspect]
     Active Substance: INDAPAMIDE
     Dosage: 2.5 MG, QD (EACH MORNING)
  2. IMIQUIMOD. [Concomitant]
     Active Substance: IMIQUIMOD
     Indication: HYPERKERATOSIS
     Dosage: UNK (AT NIGHT)
  3. RAMIPRIL. [Concomitant]
     Active Substance: RAMIPRIL
     Dosage: 7.5 MG, QD (EACH MORNING)
  4. LANSOPRAZOLE. [Suspect]
     Active Substance: LANSOPRAZOLE
     Dosage: 15 MG, QD (EACH MORNING)
  5. BISOPROLOL [Concomitant]
     Active Substance: BISOPROLOL
     Dosage: 5 MG, QD (EACH MORNING)
  6. ATORVASTATIN [Concomitant]
     Active Substance: ATORVASTATIN
     Dosage: 40 MG, QD (AT NIGHT)
  7. WARFARIN [Concomitant]
     Active Substance: WARFARIN
     Dosage: UNK (AS PER INR (6MG EACH DAY EXCEPT 7MG ON WEDNESDAYS))

REACTIONS (4)
  - Hypotension [Unknown]
  - Syncope [Recovered/Resolved]
  - Hyponatraemia [Recovering/Resolving]
  - Loss of consciousness [Recovering/Resolving]
